FAERS Safety Report 6545337-5 (Version None)
Quarter: 2010Q1

REPORT INFORMATION
  Report Type: 
  Country: None (occurrence: None)
  Receive Date: 20100114
  Receipt Date: 20090915
  Transmission Date: 20100710
  Serious: No
  Sender: FDA-Public Use
  Company Number: 2009BM000227

PATIENT
  Age: 24 Year
  Sex: Female
  Weight: 44 kg

DRUGS (3)
  1. KUVAN [Suspect]
     Indication: PHENYLKETONURIA
     Dosage: 20 MG/KG;PO ; 20 MG/KG;PO ; PO
     Route: 048
     Dates: start: 20070101
  2. KUVAN [Suspect]
     Indication: PHENYLKETONURIA
     Dosage: 20 MG/KG;PO ; 20 MG/KG;PO ; PO
     Route: 048
     Dates: start: 20080110
  3. KUVAN [Suspect]
     Indication: PHENYLKETONURIA
     Dosage: 20 MG/KG;PO ; 20 MG/KG;PO ; PO
     Route: 048
     Dates: start: 20090601

REACTIONS (3)
  - DIZZINESS [None]
  - FATIGUE [None]
  - LETHARGY [None]
